FAERS Safety Report 13936933 (Version 2)
Quarter: 2017Q4

REPORT INFORMATION
  Report Type: Spontaneous
  Country: US (occurrence: US)
  Receive Date: 20170905
  Receipt Date: 20171206
  Transmission Date: 20180320
  Serious: No
  Sender: FDA-Public Use
  Company Number: US-PFIZER INC-2017379879

PATIENT
  Age: 73 Year
  Sex: Female
  Weight: 52 kg

DRUGS (4)
  1. LEXISCAN [Concomitant]
     Active Substance: REGADENOSON
     Indication: CARDIAC STRESS TEST
     Dosage: UNK
     Dates: start: 20170828
  2. AMINOPHYLLINE. [Suspect]
     Active Substance: AMINOPHYLLINE
     Indication: HEADACHE
     Dosage: 50 MG, SINGLE
     Dates: start: 20170828, end: 20170828
  3. AMINOPHYLLINE. [Suspect]
     Active Substance: AMINOPHYLLINE
     Indication: FLUSHING
     Dosage: 50 MG, SINGLE
     Route: 042
     Dates: start: 20170828, end: 20170828
  4. AMINOPHYLLINE. [Suspect]
     Active Substance: AMINOPHYLLINE
     Indication: DIZZINESS

REACTIONS (2)
  - Product use in unapproved indication [Unknown]
  - Urticaria [Unknown]

NARRATIVE: CASE EVENT DATE: 20170829
